FAERS Safety Report 9236675 (Version 1)
Quarter: 2013Q2

REPORT INFORMATION
  Report Type: Spontaneous
  Country: US (occurrence: US)
  Receive Date: 20130417
  Receipt Date: 20130417
  Transmission Date: 20140414
  Serious: Yes (Hospitalization)
  Sender: FDA-Public Use
  Company Number: US-GLAXOSMITHKLINE-A0794413A

PATIENT
  Age: 70 Year
  Sex: Male

DRUGS (3)
  1. AVANDIA [Suspect]
     Indication: DIABETES MELLITUS
     Route: 048
     Dates: end: 20070712
  2. METFORMIN [Concomitant]
  3. GLYBURIDE [Concomitant]

REACTIONS (3)
  - Cerebrovascular accident [Not Recovered/Not Resolved]
  - Dyspnoea [Unknown]
  - Transient ischaemic attack [Unknown]
